FAERS Safety Report 26005914 (Version 1)
Quarter: 2025Q4

REPORT INFORMATION
  Report Type: Spontaneous
  Country: US (occurrence: None)
  Receive Date: 20251105
  Receipt Date: 20251105
  Transmission Date: 20260118
  Serious: Yes (Life-Threatening)
  Sender: FDA-CTU
  Company Number: None

PATIENT
  Age: 73 Year
  Sex: Female

DRUGS (1)
  1. HUMIRA [Suspect]
     Active Substance: ADALIMUMAB
     Dosage: 40MG EVERY 2 WEEKS ORAL
     Route: 048

REACTIONS (5)
  - Alopecia [None]
  - Skin cancer [None]
  - Pneumonia [None]
  - Liver disorder [None]
  - Lung disorder [None]
